FAERS Safety Report 4409570-0 (Version None)
Quarter: 2004Q3

REPORT INFORMATION
  Report Type: 
  Country: None (occurrence: None)
  Receive Date: 20040723
  Receipt Date: 20040716
  Transmission Date: 20050211
  Serious: Yes (Death, Hospitalization)
  Sender: FDA-Public Use
  Company Number: 163-20785-04060394

PATIENT
  Age: 56 Year
  Sex: Male

DRUGS (2)
  1. THALOMID [Suspect]
     Indication: PROSTATE CANCER
     Dosage: 200 MG, QD, ORAL
     Route: 048
     Dates: start: 20040101, end: 20040401
  2. ZOMETA [Concomitant]

REACTIONS (7)
  - DISEASE PROGRESSION [None]
  - JAUNDICE CHOLESTATIC [None]
  - METASTATIC NEOPLASM [None]
  - PANCREATITIS [None]
  - PROCEDURAL COMPLICATION [None]
  - PROSTATE CANCER [None]
  - RENAL FAILURE [None]
